FAERS Safety Report 9441733 (Version 2)
Quarter: 2013Q3

REPORT INFORMATION
  Report Type: Spontaneous
  Country: JP (occurrence: JP)
  Receive Date: 20130806
  Receipt Date: 20130910
  Transmission Date: 20140515
  Serious: Yes (Hospitalization, Other)
  Sender: FDA-Public Use
  Company Number: JP-AMGEN-JPNSP2013054723

PATIENT
  Age: 64 Year
  Sex: Female
  Weight: 47 kg

DRUGS (23)
  1. RANMARK [Suspect]
     Indication: METASTASES TO BONE
     Route: 058
     Dates: start: 20130628, end: 20130628
  2. FEMARA [Concomitant]
     Indication: BREAST CANCER
     Dosage: 2.5 MG, QD
     Route: 048
     Dates: start: 20081121, end: 20130505
  3. CYCLOPHOSPHAMIDE [Concomitant]
     Indication: BREAST CANCER
     Dosage: 4 CYCLE
     Route: 041
     Dates: start: 2008
  4. EPIRUBICIN HYDROCHLORIDE [Concomitant]
     Indication: BREAST CANCER
     Dosage: 4 CYCLE
     Route: 041
     Dates: start: 2008
  5. FLUOROURACIL [Concomitant]
     Indication: BREAST CANCER
     Dosage: 4 CYCLE
     Route: 041
     Dates: start: 2008
  6. PACLITAXEL [Concomitant]
     Indication: BREAST CANCER
     Dosage: UNKNOWN
     Route: 041
     Dates: start: 20090216
  7. DOCETAXEL [Concomitant]
     Indication: BREAST CANCER
     Dosage: TOTAL 5 KURR
     Route: 065
     Dates: start: 20101213
  8. XELODA [Concomitant]
     Indication: BREAST CANCER
     Dosage: UNKNOWN
     Route: 065
     Dates: start: 20110422
  9. BEVACIZUMAB [Concomitant]
     Indication: METASTASES TO BONE
     Dosage: UNKNOWN
     Route: 041
     Dates: start: 20130426
  10. FARESTON [Concomitant]
     Indication: BREAST CANCER
     Dosage: UNKNOWN
     Route: 048
     Dates: start: 20130629
  11. OXYCONTIN [Concomitant]
     Indication: BREAST CANCER
     Dosage: UNKNOWN
     Route: 048
     Dates: start: 20130508
  12. NEXIUM                             /01479302/ [Concomitant]
     Dosage: UNKNOWN
     Route: 048
     Dates: start: 20130518
  13. CELECOX [Concomitant]
     Dosage: UNKNOWN
     Route: 048
     Dates: start: 20130529
  14. AMLODIN [Concomitant]
     Dosage: UNKNOWN
     Route: 048
  15. LYRICA [Concomitant]
     Dosage: UNKNOWN
     Route: 048
  16. MAGMITT [Concomitant]
     Dosage: UNKNOWN
     Route: 048
  17. OXINORM                            /00045603/ [Concomitant]
     Indication: BREAST CANCER
     Dosage: UNKNOWN
     Route: 048
     Dates: start: 20130508
  18. CYTOTEC [Concomitant]
     Dosage: UNKNOWN
     Route: 048
     Dates: start: 20130529
  19. MICARDIS [Concomitant]
     Dosage: UNKNOWN
     Route: 048
  20. NOVAMIN                            /00013301/ [Concomitant]
     Dosage: UNKNOWN
     Route: 048
  21. BROTIZOLAM [Concomitant]
     Dosage: UNKNOWN
     Route: 048
  22. ALFACALCIDOL [Concomitant]
     Dosage: 1 MUG, QD
     Route: 048
     Dates: start: 20130629
  23. CALCIUM LACTATE [Concomitant]
     Dosage: 1 G, TID
     Route: 048
     Dates: start: 20130629

REACTIONS (1)
  - Hypocalcaemia [Recovered/Resolved]
